FAERS Safety Report 24254521 (Version 1)
Quarter: 2024Q3

REPORT INFORMATION
  Report Type: Spontaneous
  Country: US (occurrence: US)
  Receive Date: 20240827
  Receipt Date: 20240827
  Transmission Date: 20241016
  Serious: No
  Sender: BAUSCH AND LOMB
  Company Number: US-BAUSCH-BL-2024-012763

PATIENT
  Age: 58 Year
  Sex: Male

DRUGS (2)
  1. RELISTOR [Suspect]
     Active Substance: METHYLNALTREXONE BROMIDE
     Indication: Constipation
     Route: 048
     Dates: start: 20240819
  2. SIMETHICONE (DIMETHICONE) [Concomitant]
     Active Substance: DIMETHICONE
     Indication: Flatulence
     Route: 065

REACTIONS (7)
  - Feeling jittery [Unknown]
  - Anxiety [Unknown]
  - Malaise [Unknown]
  - Rhinorrhoea [Unknown]
  - Hyperhidrosis [Unknown]
  - Abdominal pain upper [Unknown]
  - Abdominal pain [Unknown]

NARRATIVE: CASE EVENT DATE: 20240819
